FAERS Safety Report 5495550-3 (Version None)
Quarter: 2007Q4

REPORT INFORMATION
  Report Type: 
  Country: None (occurrence: None)
  Receive Date: 20071025
  Receipt Date: 20071017
  Transmission Date: 20080405
  Serious: Yes (Life-Threatening, Other)
  Sender: FDA-Public Use
  Company Number: PHMT2007CA02123

PATIENT
  Sex: Male

DRUGS (1)
  1. EXJADE [Suspect]
     Dosage: UNK, UNK

REACTIONS (3)
  - HAEMORRHAGE INTRACRANIAL [None]
  - SURGERY [None]
  - THROMBOCYTOPENIA [None]
